FAERS Safety Report 6841636-8 (Version None)
Quarter: 2010Q3

REPORT INFORMATION
  Report Type: 
  Country: None (occurrence: None)
  Receive Date: 20100714
  Receipt Date: 20070710
  Transmission Date: 20110219
  Serious: No
  Sender: FDA-Public Use
  Company Number: US-PFIZER INC-2007058657

PATIENT
  Sex: Male
  Weight: 97.5 kg

DRUGS (10)
  1. CHANTIX [Suspect]
     Indication: SMOKING CESSATION THERAPY
     Route: 048
     Dates: start: 20070627, end: 20070706
  2. MULTI-VITAMINS [Concomitant]
  3. ACETAMINOPHEN [Concomitant]
  4. ASPIRINE [Concomitant]
  5. TRAMADOL [Concomitant]
  6. IBUPROFEN [Concomitant]
  7. GABAPENTIN [Concomitant]
  8. TRAZODONE HYDROCHLORIDE [Concomitant]
  9. DYAZIDE [Concomitant]
  10. CYMBALTA [Concomitant]

REACTIONS (1)
  - NIGHTMARE [None]
